FAERS Safety Report 7283450-8 (Version None)
Quarter: 2011Q1

REPORT INFORMATION
  Report Type: 
  Country: None (occurrence: None)
  Receive Date: 20110204
  Receipt Date: 20110204
  Transmission Date: 20110831
  Serious: No
  Sender: FDA-Public Use
  Company Number: None

PATIENT
  Sex: Female
  Weight: 61.2356 kg

DRUGS (1)
  1. SINGULAIR [Suspect]
     Indication: ASTHMA
     Dosage: 1 10MG EVERYDAY
     Dates: start: 19990101

REACTIONS (6)
  - PAIN [None]
  - HALLUCINATIONS, MIXED [None]
  - DIZZINESS [None]
  - ABNORMAL DREAMS [None]
  - DYSPNOEA [None]
  - INSOMNIA [None]
